FAERS Safety Report 5669857-0 (Version None)
Quarter: 2008Q1

REPORT INFORMATION
  Report Type: 
  Country: None (occurrence: None)
  Receive Date: 20080317
  Receipt Date: 20080305
  Transmission Date: 20080703
  Serious: Yes (Hospitalization, Other)
  Sender: FDA-Public Use
  Company Number: JP-PFIZER INC-2008014211

PATIENT
  Sex: Female

DRUGS (16)
  1. SOLU-MEDROL [Suspect]
     Indication: PNEUMONIA
     Route: 042
     Dates: start: 20080128, end: 20080129
  2. SOLU-MEDROL [Suspect]
     Indication: ASTHMA
  3. MEROPEN [Concomitant]
     Route: 042
     Dates: start: 20080121, end: 20080127
  4. LASIX [Concomitant]
     Route: 042
     Dates: start: 20080128, end: 20080131
  5. MINOMYCIN [Concomitant]
     Route: 042
     Dates: start: 20080128, end: 20080205
  6. FAMOTIDINE [Concomitant]
     Route: 042
     Dates: start: 20071216, end: 20080225
  7. ELIETEN [Concomitant]
     Route: 042
     Dates: start: 20080122, end: 20080225
  8. PRODIF [Concomitant]
     Route: 042
     Dates: start: 20080128, end: 20080130
  9. ALL OTHER THERAPEUTIC PRODUCTS [Concomitant]
     Route: 042
     Dates: start: 20071228, end: 20080225
  10. DOPAMINE HCL [Concomitant]
     Route: 042
     Dates: start: 20080126, end: 20080225
  11. INTRALIPID 10% [Concomitant]
     Route: 042
     Dates: start: 20071209, end: 20080225
  12. BISOLVON [Concomitant]
     Route: 042
     Dates: start: 20080116, end: 20080225
  13. HICALIQ [Concomitant]
     Route: 042
     Dates: start: 20080125, end: 20080129
  14. MORIPRON [Concomitant]
     Route: 042
     Dates: start: 20071205, end: 20080129
  15. VITAMIN CAP [Concomitant]
     Route: 042
     Dates: start: 20071205, end: 20080129
  16. ELEMENMIC [Concomitant]
     Route: 042
     Dates: start: 20071205, end: 20080129

REACTIONS (1)
  - HYPERGLYCAEMIA [None]
